FAERS Safety Report 6348551-7 (Version None)
Quarter: 2009Q3

REPORT INFORMATION
  Report Type: 
  Country: None (occurrence: None)
  Receive Date: 20090911
  Receipt Date: 20080108
  Transmission Date: 20100115
  Serious: Yes (Hospitalization, Other)
  Sender: FDA-Public Use
  Company Number: US-ASTRAZENECA-2007UW12124

PATIENT
  Age: 11734 Day
  Sex: Female
  Weight: 60.8 kg

DRUGS (37)
  1. SEROQUEL [Suspect]
     Indication: BIPOLAR DISORDER
     Dosage: 100-900 MG
     Route: 048
     Dates: start: 20041108
  2. SEROQUEL [Suspect]
     Indication: PARANOIA
     Dosage: 100-900 MG
     Route: 048
     Dates: start: 20041108
  3. SEROQUEL [Suspect]
     Indication: ANXIETY
     Dosage: 100-900 MG
     Route: 048
     Dates: start: 20041108
  4. SEROQUEL [Suspect]
     Dosage: 100MG - 800 MG
     Route: 048
     Dates: start: 20051216
  5. SEROQUEL [Suspect]
     Dosage: 100MG - 800 MG
     Route: 048
     Dates: start: 20051216
  6. SEROQUEL [Suspect]
     Dosage: 100MG - 800 MG
     Route: 048
     Dates: start: 20051216
  7. ABILIFY [Concomitant]
     Dates: start: 20050104
  8. GEODON [Concomitant]
     Dates: start: 20060101
  9. HALDOL [Concomitant]
     Dates: start: 20070101
  10. RISPERDAL [Concomitant]
     Dosage: .5 MG- 2 MG
     Dates: start: 20040304, end: 20040602
  11. ZYPREXA [Concomitant]
     Dates: start: 20050329, end: 20050525
  12. OXYCODONE HCL AND ACETAMINOPHEN [Concomitant]
  13. LITHIUM CARBONATE [Concomitant]
  14. HYDROCODONE BITARTRATE + ACETAMINOPHEN [Concomitant]
  15. RABEPRAZOLE SODIUM [Concomitant]
  16. LORAZEPAM [Concomitant]
  17. BUSPIRONE HCL [Concomitant]
  18. ZOLPIDEM TARTRATE [Concomitant]
  19. CLONAZEPAM [Concomitant]
  20. TOPIRAMATE [Concomitant]
  21. METHOCARBAMOL [Concomitant]
  22. HYDROCORTISONE [Concomitant]
  23. CLOTRIMAZOLE [Concomitant]
  24. CIPROFLAXACIN [Concomitant]
  25. PROMETHAZINE [Concomitant]
  26. AMOXICILLIN [Concomitant]
  27. GUAIFENESIN [Concomitant]
  28. CARBAMAZEPINE [Concomitant]
  29. FLUCONAZOLE [Concomitant]
  30. PHENAZOPYRIDINE HCL TAB [Concomitant]
  31. COTRIM [Concomitant]
  32. MIRTAZAPINE [Concomitant]
  33. METHYLPRED [Concomitant]
  34. HYDROXYZINE [Concomitant]
  35. XANAX [Concomitant]
     Route: 048
     Dates: start: 20051010
  36. PROTONIX [Concomitant]
     Route: 048
     Dates: start: 20051010
  37. PROZAC [Concomitant]
     Dosage: 40-60 MG
     Route: 048
     Dates: start: 20051010

REACTIONS (7)
  - BILIARY DYSKINESIA [None]
  - CHOLECYSTECTOMY [None]
  - CHOLECYSTITIS [None]
  - DIABETIC COMPLICATION [None]
  - PANCREATITIS [None]
  - PANCREATITIS ACUTE [None]
  - PANCREATITIS CHRONIC [None]
